FAERS Safety Report 4813052-1 (Version None)
Quarter: 2005Q4

REPORT INFORMATION
  Report Type: 
  Country: None (occurrence: None)
  Receive Date: 20051028
  Receipt Date: 20051018
  Transmission Date: 20060501
  Serious: Yes (Hospitalization)
  Sender: FDA-Public Use
  Company Number: JP-JNJFOC-20050806626

PATIENT
  Sex: Male
  Weight: 30 kg

DRUGS (18)
  1. REMICADE [Suspect]
     Route: 042
  2. REMICADE [Suspect]
     Route: 042
  3. REMICADE [Suspect]
     Route: 042
  4. REMICADE [Suspect]
     Route: 042
  5. REMICADE [Suspect]
     Route: 042
  6. REMICADE [Suspect]
     Route: 042
  7. REMICADE [Suspect]
     Route: 042
  8. REMICADE [Suspect]
     Route: 042
  9. REMICADE [Suspect]
     Route: 042
  10. REMICADE [Suspect]
     Route: 042
  11. REMICADE [Suspect]
     Route: 042
  12. REMICADE [Suspect]
     Indication: CROHN'S DISEASE
     Route: 042
  13. LEUKERIN [Suspect]
     Indication: CROHN'S DISEASE
     Route: 048
  14. PREDONINE [Concomitant]
     Indication: CROHN'S DISEASE
     Route: 048
  15. PENTASA [Concomitant]
     Indication: CROHN'S DISEASE
     Route: 048
  16. GASTER D [Concomitant]
     Route: 048
  17. ELENTAL [Concomitant]
  18. ELENTAL [Concomitant]
     Indication: CROHN'S DISEASE

REACTIONS (1)
  - MENINGITIS LISTERIA [None]
